FAERS Safety Report 9974093 (Version 1)
Quarter: 2014Q1

REPORT INFORMATION
  Report Type: Spontaneous
  Country: US (occurrence: US)
  Receive Date: 20140306
  Receipt Date: 20140306
  Transmission Date: 20141002
  Serious: Yes (Hospitalization)
  Sender: FDA-Public Use
  Company Number: US-GLAXOSMITHKLINE-A1063606A

PATIENT
  Sex: Male

DRUGS (2)
  1. COREG [Suspect]
     Indication: CARDIAC DISORDER
     Route: 065
     Dates: start: 20101013
  2. FLONASE [Concomitant]
     Dates: start: 20101025

REACTIONS (1)
  - Investigation [Unknown]
